FAERS Safety Report 5310722-6 (Version None)
Quarter: 2007Q2

REPORT INFORMATION
  Report Type: 
  Country: None (occurrence: None)
  Receive Date: 20070428
  Receipt Date: 20070416
  Transmission Date: 20071010
  Serious: Yes (Death)
  Sender: FDA-Public Use
  Company Number: ZA-PFIZER INC-2007030585

PATIENT

DRUGS (3)
  1. ATARAX [Suspect]
     Indication: FEELING OF RELAXATION
     Dosage: DAILY DOSE:50MG-FREQ:ONCE
     Route: 064
     Dates: start: 20070408, end: 20070408
  2. PREGNAVITE [Concomitant]
     Route: 064
  3. ALL OTHER THERAPEUTIC PRODUCTS [Concomitant]
     Route: 064

REACTIONS (2)
  - DISSEMINATED INTRAVASCULAR COAGULATION [None]
  - DRUG EXPOSURE DURING PREGNANCY [None]
